FAERS Safety Report 26181491 (Version 1)
Quarter: 2025Q4

REPORT INFORMATION
  Report Type: Spontaneous
  Country: GB (occurrence: GB)
  Receive Date: 20251221
  Receipt Date: 20251221
  Transmission Date: 20260118
  Serious: Yes (Other)
  Sender: MYLAN
  Company Number: None

PATIENT
  Age: 50 Year
  Sex: Female
  Weight: 74 kg

DRUGS (10)
  1. DOXYCYCLINE [Suspect]
     Active Substance: DOXYCYCLINE
     Indication: Ill-defined disorder
     Dosage: UNK
  2. WEGOVY [Concomitant]
     Active Substance: SEMAGLUTIDE
     Indication: Ill-defined disorder
     Dosage: UNK (ISSUED BY MEDEXPRESS)
  3. BENZOYL PEROXIDE [Concomitant]
     Active Substance: BENZOYL PEROXIDE
     Indication: Ill-defined disorder
     Dosage: UNK (USE AS DIRECTED TO FACE)
  4. CHLORHEXIDINE GLUCONATE [Concomitant]
     Active Substance: CHLORHEXIDINE GLUCONATE
     Indication: Ill-defined disorder
     Dosage: UNK (USE AS DIRECTED)
  5. LYMECYCLINE [Concomitant]
     Active Substance: LYMECYCLINE
     Indication: Ill-defined disorder
     Dosage: 1 DOSAGE FORM, QD (ONE EACH DAY)
     Dates: start: 20251015
  6. CITALOPRAM [Concomitant]
     Active Substance: CITALOPRAM
     Indication: Ill-defined disorder
     Dosage: 2 DOSAGE FORM, QD (TAKE TWO DAILY)
     Dates: start: 20250730
  7. BECLOMETHASONE\FORMOTEROL [Concomitant]
     Active Substance: BECLOMETHASONE\FORMOTEROL
     Indication: Ill-defined disorder
     Dosage: 1 DOSAGE FORM, BID (ONE PUFF TWICE DAY)
     Dates: start: 20250730
  8. MEBEVERINE HYDROCHLORIDE [Concomitant]
     Active Substance: MEBEVERINE HYDROCHLORIDE
     Indication: Ill-defined disorder
     Dosage: 1 DOSAGE FORM, TID (TAKE ONE 3 TIMES/DAY IF REQUIRED FOR PAIN)
     Dates: start: 20250730
  9. OMEPRAZOLE [Concomitant]
     Active Substance: OMEPRAZOLE
     Indication: Ill-defined disorder
     Dosage: 1 DOSAGE FORM, BID (TAKE ONE TWICE A DAY)
     Dates: start: 20250730
  10. ALBUTEROL [Concomitant]
     Active Substance: ALBUTEROL
     Indication: Ill-defined disorder
     Dosage: UNK, PRN (INHALE 2 DOSES AS NEEDED UP TO 4 TIMES A DAY TO..)

REACTIONS (2)
  - Dizziness [Recovered/Resolved]
  - Panic attack [Unknown]
